FAERS Safety Report 9255282 (Version 1)
Quarter: 2013Q1

REPORT INFORMATION
  Report Type: Spontaneous
  Country: US (occurrence: None)
  Receive Date: 20121212
  Receipt Date: 20121212
  Transmission Date: 20140127
  Serious: No
  Sender: FDA-Public Use
  Company Number: 1209USA010840

PATIENT
  Age: 36 Year
  Sex: Female

DRUGS (3)
  1. PEGINTRON [Suspect]
     Indication: HEPATITIS C
     Dosage: REDIPEN
     Dates: start: 20121005
  2. REBETOL [Suspect]
     Indication: HEPATITIS C
     Dates: start: 20120907
  3. VICTRELIS [Suspect]

REACTIONS (10)
  - Dysmenorrhoea [None]
  - Menstruation irregular [None]
  - Influenza like illness [None]
  - Arthralgia [None]
  - Decreased appetite [None]
  - Weight decreased [None]
  - Fatigue [None]
  - Abdominal pain upper [None]
  - Flatulence [None]
  - Cough [None]
